FAERS Safety Report 7562733-8 (Version None)
Quarter: 2011Q2

REPORT INFORMATION
  Report Type: 
  Country: None (occurrence: None)
  Receive Date: 20110622
  Receipt Date: 20110616
  Transmission Date: 20111010
  Serious: No
  Sender: FDA-Public Use
  Company Number: US-TEVA-287086USA

PATIENT
  Sex: Female
  Weight: 79.904 kg

DRUGS (4)
  1. PLAN B ONE-STEP [Suspect]
     Indication: POST COITAL CONTRACEPTION
     Dosage: 1.5 MILLIGRAM;
     Route: 048
     Dates: start: 20110616, end: 20110616
  2. BACTRIM [Concomitant]
     Indication: URINARY TRACT INFECTION
     Route: 048
     Dates: start: 20110614
  3. DESMOPRESSIN ACETATE [Concomitant]
     Indication: DEPRESSION
     Dosage: .2 MILLIGRAM;
     Route: 048
     Dates: start: 20080101
  4. LUTERA [Concomitant]
     Indication: CONTRACEPTION
     Route: 048
     Dates: start: 20100101

REACTIONS (1)
  - VOMITING [None]
